FAERS Safety Report 20893048 (Version 4)
Quarter: 2024Q1

REPORT INFORMATION
  Report Type: Spontaneous
  Country: DE (occurrence: DE)
  Receive Date: 20220531
  Receipt Date: 20240223
  Transmission Date: 20240410
  Serious: Yes (Other)
  Sender: FDA-Public Use
  Company Number: DE-AMGEN-DEUNI2022080797

PATIENT
  Age: 52 Year
  Sex: Male
  Weight: 61 kg

DRUGS (40)
  1. LEUCOVORIN [Suspect]
     Active Substance: LEUCOVORIN\LEUCOVORIN CALCIUM
     Indication: Colorectal cancer metastatic
     Dosage: 696 MILLIGRAM
     Route: 065
     Dates: start: 20201014
  2. LEUCOVORIN [Suspect]
     Active Substance: LEUCOVORIN\LEUCOVORIN CALCIUM
     Dosage: 700 MILLIGRAM
     Route: 065
     Dates: start: 20201125
  3. LEUCOVORIN [Suspect]
     Active Substance: LEUCOVORIN\LEUCOVORIN CALCIUM
     Dosage: 750 MILLIGRAM
     Route: 065
     Dates: start: 20220406
  4. LEUCOVORIN [Suspect]
     Active Substance: LEUCOVORIN\LEUCOVORIN CALCIUM
     Dosage: 720 MILLIGRAM
     Route: 065
     Dates: start: 20220906
  5. LEUCOVORIN [Suspect]
     Active Substance: LEUCOVORIN\LEUCOVORIN CALCIUM
     Dosage: 396 MILLIGRAM
     Route: 065
     Dates: start: 20201028
  6. IRINOTECAN [Suspect]
     Active Substance: IRINOTECAN
     Indication: Colorectal cancer metastatic
     Dosage: 313 MILLIGRAM
     Route: 065
     Dates: start: 20201014
  7. IRINOTECAN [Suspect]
     Active Substance: IRINOTECAN
     Dosage: 336 MILLIGRAM
     Route: 065
     Dates: start: 20220406
  8. IRINOTECAN [Suspect]
     Active Substance: IRINOTECAN
     Dosage: 325 MILLIGRAM
     Route: 065
     Dates: start: 20220906
  9. FLUOROURACIL [Suspect]
     Active Substance: FLUOROURACIL
     Indication: Colorectal cancer metastatic
     Dosage: 4176 MILLIGRAM
     Route: 042
     Dates: start: 20201014
  10. FLUOROURACIL [Suspect]
     Active Substance: FLUOROURACIL
     Dosage: 696 MILLIGRAM
     Route: 040
     Dates: start: 20201014
  11. FLUOROURACIL [Suspect]
     Active Substance: FLUOROURACIL
     Dosage: 700 MILLIGRAM
     Route: 040
     Dates: start: 20201125
  12. FLUOROURACIL [Suspect]
     Active Substance: FLUOROURACIL
     Dosage: 4180 MILLIGRAM
     Route: 042
     Dates: start: 20201125
  13. FLUOROURACIL [Suspect]
     Active Substance: FLUOROURACIL
     Dosage: 750 MILLIGRAM
     Route: 040
     Dates: start: 20220406
  14. FLUOROURACIL [Suspect]
     Active Substance: FLUOROURACIL
     Dosage: 4500 MILLIGRAM
     Route: 042
     Dates: start: 20220406
  15. FLUOROURACIL [Suspect]
     Active Substance: FLUOROURACIL
     Dosage: 4300 MILLIGRAM
     Route: 065
     Dates: start: 20220906
  16. FLUOROURACIL [Suspect]
     Active Substance: FLUOROURACIL
     Dosage: 4300 MILLIGRAM
     Route: 042
     Dates: start: 20220906
  17. FLUOROURACIL [Suspect]
     Active Substance: FLUOROURACIL
     Dosage: 696 MILLIGRAM
     Route: 042
     Dates: start: 20201014
  18. FLUOROURACIL [Suspect]
     Active Substance: FLUOROURACIL
     Dosage: 720 MILLIGRAM
     Route: 042
     Dates: start: 20220906
  19. FLUOROURACIL [Suspect]
     Active Substance: FLUOROURACIL
     Dosage: 4180 MILLIGRAM
     Route: 042
     Dates: start: 20201125
  20. FLUOROURACIL [Suspect]
     Active Substance: FLUOROURACIL
     Dosage: 750 MILLIGRAM
     Route: 042
     Dates: start: 20220406
  21. FLUOROURACIL [Suspect]
     Active Substance: FLUOROURACIL
     Dosage: 700 MILLIGRAM
     Route: 042
     Dates: start: 20201125
  22. FLUOROURACIL [Suspect]
     Active Substance: FLUOROURACIL
     Dosage: 396 MILLIGRAM
     Route: 042
     Dates: start: 20201028
  23. VECTIBIX [Suspect]
     Active Substance: PANITUMUMAB
     Indication: Colorectal cancer metastatic
     Dosage: 366 MILLIGRAM
     Route: 042
     Dates: start: 20201014
  24. VECTIBIX [Suspect]
     Active Substance: PANITUMUMAB
     Dosage: 370 MILLIGRAM
     Route: 042
     Dates: start: 20201125
  25. VECTIBIX [Suspect]
     Active Substance: PANITUMUMAB
     Dosage: 440 MILLIGRAM
     Route: 042
     Dates: start: 20220406
  26. VECTIBIX [Suspect]
     Active Substance: PANITUMUMAB
     Dosage: 370 MILLIGRAM
     Route: 042
     Dates: start: 20201125
  27. VECTIBIX [Suspect]
     Active Substance: PANITUMUMAB
     Dosage: 390 MILLIGRAM
     Route: 042
     Dates: start: 20220906
  28. ERYTHROMYCIN RATIOPHARM [Concomitant]
     Indication: Rash
     Dosage: 100 GRAM, ONCE A DAY (50 GRAM, TWO TIMES A DAY)
     Route: 062
     Dates: start: 20210111
  29. SODERM [Concomitant]
     Indication: Rash
     Dosage: 2 UNK, ONCE A DAY (1.22 UNK, TWO TIMES A DAY)
     Route: 062
     Dates: start: 20210111
  30. DOXYCYCLIN RATIOPHARM [Concomitant]
     Indication: Rash
     Dosage: 100 MILLIGRAM
     Route: 048
     Dates: start: 20211027, end: 20220608
  31. DOXYCYCLIN RATIOPHARM [Concomitant]
     Dosage: 200 MILLIGRAM, ONCE A DAY
     Route: 048
     Dates: start: 20201014, end: 20220608
  32. INNOHEP [Concomitant]
     Active Substance: TINZAPARIN SODIUM
     Indication: Thrombosis
     Dosage: 2000 INTERNATIONAL UNIT, ONCE A DAY
     Route: 058
     Dates: start: 20210414
  33. CALCIUM\CHOLECALCIFEROL [Concomitant]
     Active Substance: CALCIUM\CHOLECALCIFEROL
     Indication: Vitamin D deficiency
     Dosage: UNK 1, ONCE A DAY
     Route: 048
     Dates: start: 20210609
  34. Novalgin [Concomitant]
     Indication: Pain
     Dosage: 4 GRAM, ONCE A DAY
     Route: 048
     Dates: start: 20220906
  35. NALOXONE HYDROCHLORIDE\OXYCODONE HYDROCHLORIDE [Concomitant]
     Active Substance: NALOXONE HYDROCHLORIDE\OXYCODONE HYDROCHLORIDE
     Indication: Pain
     Dosage: 20 MILLIGRAM, ONCE A DAY
     Route: 048
     Dates: start: 20220906
  36. SODIUM PICOSULFATE [Concomitant]
     Active Substance: SODIUM PICOSULFATE
     Indication: Constipation
     Dosage: 15UNK, QD , ONCE A DAY
     Route: 065
     Dates: start: 20220906
  37. TOXICODENDRON PUBESCENS [Concomitant]
     Indication: Pain
     Dosage: 5 MILLIGRAM AS NECESSARY
     Route: 048
     Dates: start: 20220906
  38. OXYCODON HCL HEXAL [Concomitant]
     Indication: Pain
     Dosage: 5 MILLIGRAM, AS NECESSARY
     Route: 048
     Dates: start: 20220906
  39. CHOLECALCIFEROL [Concomitant]
     Active Substance: CHOLECALCIFEROL
     Indication: Product used for unknown indication
     Dosage: UNK (1 WEEK)
     Route: 048
     Dates: start: 20220427
  40. MCP-RATIOPHARM [Concomitant]
     Active Substance: METOCLOPRAMIDE HYDROCHLORIDE
     Indication: Nausea
     Dosage: 30 MILLIGRAM, ONCE A DAY
     Route: 048
     Dates: start: 20220906

REACTIONS (2)
  - Dermatitis bullous [Recovered/Resolved]
  - Rash [Unknown]

NARRATIVE: CASE EVENT DATE: 20220406
